FAERS Safety Report 10029909 (Version 1)
Quarter: 2014Q1

REPORT INFORMATION
  Report Type: Spontaneous
  Country: US (occurrence: None)
  Receive Date: 20140306
  Receipt Date: 20140306
  Transmission Date: 20141002
  Serious: Yes (Other)
  Sender: FDA-Public Use
  Company Number: 163-21880-12110984

PATIENT
  Age: 74 Year
  Sex: Male

DRUGS (17)
  1. REVLIMID (LENALIDOMIDE) (15 MILLIGRAM, CAPSULES) [Suspect]
     Indication: PLASMA CELL MYELOMA
     Route: 048
     Dates: start: 201204
  2. ASPIRIN (ACETYLSALICYLIC ACID) [Concomitant]
  3. GLYBURIDE (GLIBENCLAMIDE) [Concomitant]
  4. ISOSORBIDE MONONITRATE (ISOSORBIDE MONONITRATE) [Concomitant]
  5. LISINOPRIL (LISINOPRIL) [Concomitant]
  6. METOPROLOL TARTRATE (METOPROLOL TARTRATE) [Concomitant]
  7. MULTIVITAMINS (MULTIVITAMINS) [Concomitant]
  8. NIASPAN (NICOTINIC ACID) [Concomitant]
  9. PLAVIX (CLOPIDOGREL SULFATE) [Concomitant]
  10. PRAVASTATIN SODIUM (PRAVASTATIN SODIUM) [Concomitant]
  11. TACLONEX (DAIVOBET) [Concomitant]
  12. TRILIPIX (CHOLINE FENOFIBRATE) [Concomitant]
  13. TYLENOL PM EXTRA STRENGTH (DOZOL) [Concomitant]
  14. ZOLEDRONIC ACID (ZOLEDRONIC ACID) [Concomitant]
  15. VELCADE (BORTEZOMIB) [Concomitant]
  16. DECADRON (DEXAMETHASONE) [Concomitant]
  17. ADVIL (IBUPROFEN) [Concomitant]

REACTIONS (2)
  - Hip fracture [None]
  - Diarrhoea [None]
